FAERS Safety Report 13554182 (Version 2)
Quarter: 2017Q3

REPORT INFORMATION
  Report Type: Spontaneous
  Country: JP (occurrence: JP)
  Receive Date: 20170517
  Receipt Date: 20170731
  Transmission Date: 20171127
  Serious: Yes (Hospitalization)
  Sender: FDA-Public Use
  Company Number: JP-BAYER-2017-090583

PATIENT
  Age: 63 Year
  Sex: Female

DRUGS (5)
  1. BAYASPIRIN 100 MG [Suspect]
     Active Substance: ASPIRIN
     Dosage: UNK
     Route: 048
  2. DEPAS [Concomitant]
     Active Substance: ETIZOLAM
  3. AMLODIN [Concomitant]
     Active Substance: AMLODIPINE BESYLATE
  4. PHENYTOIN. [Concomitant]
     Active Substance: PHENYTOIN
  5. CARBAMAZEPINE. [Concomitant]
     Active Substance: CARBAMAZEPINE

REACTIONS (4)
  - Gastrointestinal oedema [None]
  - Diarrhoea [Recovered/Resolved]
  - Colitis microscopic [Recovering/Resolving]
  - Hypokalaemia [None]
